FAERS Safety Report 4966859-4 (Version None)
Quarter: 2006Q2

REPORT INFORMATION
  Report Type: 
  Country: None (occurrence: None)
  Receive Date: 20060407
  Receipt Date: 20051214
  Transmission Date: 20061013
  Serious: Yes (Other)
  Sender: FDA-Public Use
  Company Number: US-MERCK-0512USA02310

PATIENT
  Age: 50 Year
  Sex: Male
  Weight: 132 kg

DRUGS (1)
  1. VIOXX [Suspect]
     Indication: BACK PAIN
     Route: 048
     Dates: start: 20020101, end: 20041001

REACTIONS (6)
  - ATRIOVENTRICULAR BLOCK [None]
  - BACK PAIN [None]
  - CHEST PAIN [None]
  - INSOMNIA [None]
  - MYOCARDIAL INFARCTION [None]
  - OVERDOSE [None]
